FAERS Safety Report 25843906 (Version 1)
Quarter: 2025Q3

REPORT INFORMATION
  Report Type: Spontaneous
  Country: IN (occurrence: IN)
  Receive Date: 20250925
  Receipt Date: 20250925
  Transmission Date: 20251020
  Serious: Yes (Life-Threatening, Hospitalization, Other)
  Sender: PHARMOBEDIENT CONSULTING, LLC
  Company Number: IN-Pharmobedient-000237

PATIENT
  Age: 22 Year
  Sex: Male

DRUGS (4)
  1. CLONAZEPAM [Suspect]
     Active Substance: CLONAZEPAM
     Indication: Suicide attempt
     Route: 048
  2. PRAZOSIN [Suspect]
     Active Substance: PRAZOSIN
     Indication: Suicide attempt
     Route: 048
  3. IVABRADINE [Suspect]
     Active Substance: IVABRADINE
     Indication: Suicide attempt
     Route: 048
  4. PROPRANOLOL [Suspect]
     Active Substance: PROPRANOLOL HYDROCHLORIDE
     Indication: Suicide attempt
     Route: 048

REACTIONS (7)
  - Intentional overdose [Unknown]
  - Bradycardia [Recovered/Resolved]
  - Tricuspid valve incompetence [Recovered/Resolved]
  - Respiratory failure [Recovered/Resolved]
  - Pulmonary arterial hypertension [Recovered/Resolved]
  - Diastolic dysfunction [Recovered/Resolved]
  - Hypotension [Recovered/Resolved]
